FAERS Safety Report 8937094 (Version 1)
Quarter: 2012Q4

REPORT INFORMATION
  Report Type: Spontaneous
  Country: US (occurrence: None)
  Receive Date: 20121128
  Receipt Date: 20121128
  Transmission Date: 20130627
  Serious: Yes (Other)
  Sender: FDA-Public Use
  Company Number: None

PATIENT
  Age: 60 Year
  Sex: Male

DRUGS (1)
  1. ATORVASTATIN 10 MG WATSON [Suspect]
     Route: 048
     Dates: start: 20120901, end: 20121111

REACTIONS (1)
  - Tinnitus [None]
